FAERS Safety Report 8420959-5 (Version None)
Quarter: 2012Q2

REPORT INFORMATION
  Report Type: 
  Country: None (occurrence: None)
  Receive Date: 20120608
  Receipt Date: 20120604
  Transmission Date: 20120825
  Serious: Yes (Other)
  Sender: FDA-Public Use
  Company Number: ZA-PFIZER INC-2012130930

PATIENT
  Age: 72 Year
  Sex: Female

DRUGS (4)
  1. LYRICA [Suspect]
     Indication: PAIN
     Dosage: 50MG, IN THE MORNING AND 150MG AT NIGHT
     Route: 048
  2. TENORMIN [Concomitant]
     Indication: HYPERTENSION
     Dosage: 25 MG, 1X/DAY
     Route: 048
  3. ZOLPIDEM [Concomitant]
     Dosage: UNK
     Route: 048
  4. LYRICA [Suspect]
     Dosage: 25MG IN THE MORNING AND 75MG AT NIGHT
     Route: 048
     Dates: start: 20120604

REACTIONS (6)
  - EXOPHTHALMOS [None]
  - EYE SWELLING [None]
  - ARTHRITIS [None]
  - BASEDOW'S DISEASE [None]
  - VISION BLURRED [None]
  - EYELID PTOSIS [None]
